FAERS Safety Report 10767493 (Version 1)
Quarter: 2015Q1

REPORT INFORMATION
  Report Type: Spontaneous
  Country: US (occurrence: US)
  Receive Date: 20150205
  Receipt Date: 20150205
  Transmission Date: 20150721
  Serious: Yes (Other)
  Sender: FDA-Public Use
  Company Number: US-TEVA-533910USA

PATIENT
  Sex: Male

DRUGS (2)
  1. SIMVASTATIN. [Suspect]
     Active Substance: SIMVASTATIN
     Route: 065
  2. FENTANYL. [Concomitant]
     Active Substance: FENTANYL

REACTIONS (15)
  - Arthralgia [Unknown]
  - Diarrhoea [Unknown]
  - Tendonitis [Unknown]
  - Vomiting [Unknown]
  - Suicidal ideation [Unknown]
  - Muscle atrophy [Unknown]
  - Haematochezia [Unknown]
  - Incorrect drug administration duration [Unknown]
  - Bone pain [Unknown]
  - Pain in extremity [Unknown]
  - Joint injury [Unknown]
  - Feeling abnormal [Unknown]
  - Malaise [Unknown]
  - Nausea [Unknown]
  - Weight increased [Unknown]
